FAERS Safety Report 4442091-8 (Version None)
Quarter: 2004Q3

REPORT INFORMATION
  Report Type: 
  Country: None (occurrence: None)
  Receive Date: 20040903
  Receipt Date: 20040511
  Transmission Date: 20050211
  Serious: Yes (Other)
  Sender: FDA-Public Use
  Company Number: 2004UW05547

PATIENT
  Age: 70 Year
  Sex: Female
  Weight: 77.5651 kg

DRUGS (8)
  1. CRESTOR [Suspect]
     Indication: BLOOD CHOLESTEROL INCREASED
     Dosage: 10 MG QD PO
     Route: 048
     Dates: start: 20040210, end: 20040322
  2. DILTIAZEM HCL [Concomitant]
  3. LANOXIN [Concomitant]
  4. IMDUR [Concomitant]
  5. LEVOXYL [Concomitant]
  6. VOLTAREN [Concomitant]
  7. COUMADIN [Concomitant]
  8. LORAZEPAM [Concomitant]

REACTIONS (3)
  - ARTHRALGIA [None]
  - DIFFICULTY IN WALKING [None]
  - MYALGIA [None]
